FAERS Safety Report 15903070 (Version 2)
Quarter: 2019Q1

REPORT INFORMATION
  Report Type: Spontaneous
  Country: US (occurrence: US)
  Receive Date: 20190202
  Receipt Date: 20190228
  Transmission Date: 20190417
  Serious: No
  Sender: FDA-Public Use
  Company Number: US-TEVA-2019-US-997755

PATIENT

DRUGS (2)
  1. CLONAZEPAM ACTAVIS [Suspect]
     Active Substance: CLONAZEPAM
     Route: 065
  2. CLONAZEPAM ACTAVIS [Suspect]
     Active Substance: CLONAZEPAM
     Route: 065

REACTIONS (14)
  - Anxiety [Unknown]
  - Insomnia [Unknown]
  - Drug effect incomplete [Unknown]
  - Withdrawal syndrome [Recovering/Resolving]
  - Cognitive disorder [Not Recovered/Not Resolved]
  - Product substitution issue [Unknown]
  - Confusional state [Unknown]
  - Disturbance in attention [Unknown]
  - Thinking abnormal [Recovered/Resolved]
  - Feeling of relaxation [Unknown]
  - Depression [Recovered/Resolved]
  - Head discomfort [Recovered/Resolved]
  - Lethargy [Unknown]
  - Somnolence [Unknown]
